FAERS Safety Report 5879408-3 (Version None)
Quarter: 2008Q3

REPORT INFORMATION
  Report Type: 
  Country: None (occurrence: None)
  Receive Date: 20080912
  Receipt Date: 20080910
  Transmission Date: 20090109
  Serious: Yes (Death, Hospitalization)
  Sender: FDA-Public Use
  Company Number: B0535396A

PATIENT
  Age: 80 Year
  Sex: Male

DRUGS (11)
  1. ARIXTRA [Suspect]
     Indication: PHLEBITIS
     Dosage: 2.5MG PER DAY
     Route: 058
     Dates: start: 20080715, end: 20080725
  2. PLAVIX [Suspect]
     Indication: DRUG USE FOR UNKNOWN INDICATION
     Dosage: 75MG UNKNOWN
     Route: 048
     Dates: end: 20080725
  3. SEREVENT [Concomitant]
     Indication: DRUG USE FOR UNKNOWN INDICATION
     Route: 048
     Dates: end: 20080725
  4. PYOSTACINE [Concomitant]
     Indication: ERYSIPELAS
     Route: 065
     Dates: start: 20080715, end: 20080701
  5. LASIX [Concomitant]
     Indication: DRUG USE FOR UNKNOWN INDICATION
     Dosage: 20MG UNKNOWN
     Route: 048
     Dates: end: 20080725
  6. OMIX [Concomitant]
     Indication: DRUG USE FOR UNKNOWN INDICATION
     Dosage: .4MG UNKNOWN
     Route: 048
     Dates: end: 20080725
  7. DEPAKENE [Concomitant]
     Indication: DRUG USE FOR UNKNOWN INDICATION
     Dosage: 500MG UNKNOWN
     Route: 048
     Dates: end: 20080725
  8. LEVOTHYROX [Concomitant]
     Indication: DRUG USE FOR UNKNOWN INDICATION
     Route: 048
     Dates: end: 20080725
  9. LANSOYL [Concomitant]
     Indication: DRUG USE FOR UNKNOWN INDICATION
     Route: 065
     Dates: end: 20080725
  10. SPIRIVA [Concomitant]
     Route: 065
  11. SMECTA [Concomitant]
     Route: 065

REACTIONS (11)
  - ABDOMINAL WALL HAEMATOMA [None]
  - ANAEMIA [None]
  - CULTURE URINE POSITIVE [None]
  - ENTEROCOCCAL INFECTION [None]
  - INFECTION [None]
  - INTESTINAL INFARCTION [None]
  - INTESTINAL OBSTRUCTION [None]
  - LUNG DISORDER [None]
  - PHLEBITIS [None]
  - SEPTIC SHOCK [None]
  - VOLVULUS [None]
